FAERS Safety Report 17844947 (Version 2)
Quarter: 2020Q3

REPORT INFORMATION
  Report Type: Spontaneous
  Country: US (occurrence: US)
  Receive Date: 20200601
  Receipt Date: 20200723
  Transmission Date: 20201103
  Serious: Yes (Other)
  Sender: FDA-Public Use
  Company Number: US-LUPIN PHARMACEUTICALS INC.-2020-02444

PATIENT
  Age: 42 Year
  Sex: Male

DRUGS (8)
  1. TRIAMCINOLONE ACETONIDE. [Suspect]
     Active Substance: TRIAMCINOLONE ACETONIDE
     Indication: LICHEN PLANOPILARIS
  2. ISOTRETINOIN. [Suspect]
     Active Substance: ISOTRETINOIN
     Dosage: 30 MILLIGRAM, QOD
     Route: 061
  3. HYDROXYCHLOROQUINE [Suspect]
     Active Substance: HYDROXYCHLOROQUINE
     Indication: LICHEN PLANOPILARIS
  4. ISOTRETINOIN. [Suspect]
     Active Substance: ISOTRETINOIN
     Indication: LICHEN PLANOPILARIS
     Dosage: 30 MILLIGRAM, QD
     Route: 048
  5. TRIAMCINOLONE ACETONIDE. [Suspect]
     Active Substance: TRIAMCINOLONE ACETONIDE
     Indication: ORAL LICHEN PLANUS
     Dosage: 5 MILLIGRAM PER MILLILITRE, EVERY 6 TO 8 WEEKS
     Route: 026
  6. FINASTERIDE. [Suspect]
     Active Substance: FINASTERIDE
     Indication: LICHEN PLANOPILARIS
     Dosage: 1.25 MILLIGRAM, QD
     Route: 048
  7. HYDROXYCHLOROQUINE [Suspect]
     Active Substance: HYDROXYCHLOROQUINE
     Indication: ORAL LICHEN PLANUS
     Dosage: UNK
     Route: 065
  8. TACROLIMUS. [Concomitant]
     Active Substance: TACROLIMUS
     Indication: LICHEN PLANOPILARIS
     Dosage: UNK
     Route: 061

REACTIONS (4)
  - Disease progression [Unknown]
  - Dry skin [Unknown]
  - Lip dry [Unknown]
  - Sexual dysfunction [Unknown]
